FAERS Safety Report 8841129 (Version 1)
Quarter: 2012Q4

REPORT INFORMATION
  Report Type: 
  Country: IN (occurrence: IN)
  Receive Date: 20121016
  Receipt Date: 20121016
  Transmission Date: 20130627
  Serious: Yes (Hospitalization)
  Sender: FDA-Public Use
  Company Number: IN-MYLANLABS-2012S1020790

PATIENT
  Age: 7 None
  Sex: Male

DRUGS (3)
  1. PACLITAXEL [Suspect]
     Indication: OESOPHAGEAL SQUAMOUS CELL CARCINOMA METASTATIC
     Dosage: received three cycles
     Route: 065
  2. IFOSFAMIDE [Suspect]
     Indication: OESOPHAGEAL SQUAMOUS CELL CARCINOMA METASTATIC
     Dosage: received three cycles
     Route: 065
  3. CISPLATIN [Suspect]
     Indication: OESOPHAGEAL SQUAMOUS CELL CARCINOMA METASTATIC
     Dosage: received three cycles
     Route: 065

REACTIONS (1)
  - Tracheo-oesophageal fistula [Recovering/Resolving]
